FAERS Safety Report 4654409-1 (Version None)
Quarter: 2005Q2

REPORT INFORMATION
  Report Type: 
  Country: None (occurrence: None)
  Receive Date: 20050404
  Receipt Date: 20050110
  Transmission Date: 20051028
  Serious: No
  Sender: FDA-Public Use
  Company Number: USA050187804

PATIENT
  Age: 86 Year
  Sex: Male

DRUGS (8)
  1. CYMBALTA [Suspect]
     Dosage: 60 MG
  2. SEROQUEL [Concomitant]
  3. ZOCOR (SIMVASTATIN RATIOPHARM) [Concomitant]
  4. WELLBUTRIN [Concomitant]
  5. DEPAKOTE [Concomitant]
  6. NORVASC [Concomitant]
  7. ARICEPT [Concomitant]
  8. ZANTAC [Concomitant]

REACTIONS (1)
  - HICCUPS [None]
